FAERS Safety Report 8231816-1 (Version None)
Quarter: 2012Q1

REPORT INFORMATION
  Report Type: 
  Country: None (occurrence: None)
  Receive Date: 20120321
  Receipt Date: 20120305
  Transmission Date: 20120608
  Serious: Yes (Other)
  Sender: FDA-Public Use
  Company Number: 2012P1009087

PATIENT
  Sex: Male

DRUGS (2)
  1. FLUCONAZOLE [Suspect]
  2. PHENYTOIN SODIUM [Suspect]

REACTIONS (2)
  - ANTICONVULSANT DRUG LEVEL INCREASED [None]
  - DRUG INTERACTION [None]
